FAERS Safety Report 6822037-5 (Version None)
Quarter: 2010Q3

REPORT INFORMATION
  Report Type: 
  Country: None (occurrence: None)
  Receive Date: 20100708
  Receipt Date: 20100628
  Transmission Date: 20110219
  Serious: Yes (Hospitalization)
  Sender: FDA-Public Use
  Company Number: US-KINGPHARMUSA00001-K201000821

PATIENT
  Age: 47 Year
  Sex: Female

DRUGS (1)
  1. TAPAZOLE [Suspect]
     Indication: BASEDOW'S DISEASE
     Dosage: UNK

REACTIONS (5)
  - AGRANULOCYTOSIS [None]
  - PHARYNGEAL ABSCESS [None]
  - RESPIRATORY FAILURE [None]
  - SERRATIA TEST POSITIVE [None]
  - STREPTOCOCCUS TEST POSITIVE [None]
